FAERS Safety Report 8806440 (Version 2)
Quarter: 2012Q4

REPORT INFORMATION
  Report Type: 
  Country: GB (occurrence: GB)
  Receive Date: 20120925
  Receipt Date: 20121009
  Transmission Date: 20130627
  Serious: Yes (Other)
  Sender: FDA-Public Use
  Company Number: GB-BAYER-2012-099229

PATIENT
  Age: 59 Year
  Sex: Female

DRUGS (1)
  1. CANESTEN COMBI 500MG PESSARY + 2% CREAM [Suspect]
     Indication: VULVOVAGINAL CANDIDIASIS
     Dosage: 500 mg, ONCE
     Dates: start: 20120918, end: 20120918

REACTIONS (2)
  - Vaginal haemorrhage [None]
  - Abdominal pain upper [None]
